FAERS Safety Report 7703112-X (Version None)
Quarter: 2011Q3

REPORT INFORMATION
  Report Type: 
  Country: None (occurrence: None)
  Receive Date: 20110823
  Receipt Date: 20110815
  Transmission Date: 20111222
  Serious: Yes (Death)
  Sender: FDA-Public Use
  Company Number: DE-ASTELLAS-2011EU005488

PATIENT
  Sex: Female

DRUGS (2)
  1. MYCAMINE [Suspect]
     Indication: BONE MARROW TRANSPLANT
  2. MYCAMINE [Suspect]
     Indication: PROPHYLAXIS
     Dosage: 50 MG, UNKNOWN/D
     Route: 065

REACTIONS (1)
  - CANDIDIASIS [None]
